FAERS Safety Report 8605999-5 (Version None)
Quarter: 2012Q3

REPORT INFORMATION
  Report Type: 
  Country: None (occurrence: None)
  Receive Date: 20120809
  Receipt Date: 20120809
  Transmission Date: 20120928
  Serious: Yes (Life-Threatening, Hospitalization)
  Sender: FDA-Public Use
  Company Number: None

PATIENT
  Age: 81 Year
  Sex: Male
  Weight: 114.9 kg

DRUGS (2)
  1. WARFARIN SODIUM [Suspect]
     Dosage: EVERY DAY PO
     Route: 048
     Dates: start: 20111024, end: 20120706
  2. . [Concomitant]

REACTIONS (6)
  - RENAL FAILURE ACUTE [None]
  - HYPOXIA [None]
  - GASTROINTESTINAL VASCULAR MALFORMATION [None]
  - ANAEMIA [None]
  - MYOCARDIAL INFARCTION [None]
  - GASTROINTESTINAL HAEMORRHAGE [None]
